FAERS Safety Report 6314999-X (Version None)
Quarter: 2009Q3

REPORT INFORMATION
  Report Type: 
  Country: None (occurrence: None)
  Receive Date: 20090819
  Receipt Date: 20090810
  Transmission Date: 20100115
  Serious: Yes (Hospitalization)
  Sender: FDA-Public Use
  Company Number: B0589250B

PATIENT

DRUGS (2)
  1. AMOXICILLIN TRIHYDRATE [Suspect]
     Indication: STREPTOCOCCAL INFECTION
  2. CEFAZOLIN [Suspect]

REACTIONS (6)
  - CAESAREAN SECTION [None]
  - DRUG EXPOSURE DURING PREGNANCY [None]
  - PNEUMOCOCCAL SEPSIS [None]
  - PREMATURE BABY [None]
  - RESPIRATORY DISTRESS [None]
  - SEPSIS NEONATAL [None]
